FAERS Safety Report 17552159 (Version 1)
Quarter: 2020Q1

REPORT INFORMATION
  Report Type: Spontaneous
  Country: US (occurrence: US)
  Receive Date: 20200317
  Receipt Date: 20200317
  Transmission Date: 20200409
  Serious: No
  Sender: FDA-Public Use
  Company Number: US-PERRIGO-19US006528

PATIENT
  Age: 69 Year
  Sex: Female
  Weight: 56.69 kg

DRUGS (4)
  1. ONE A DAY WOMEN^S [Concomitant]
     Active Substance: MINERALS\VITAMINS
     Indication: SUPPLEMENTATION THERAPY
     Dosage: UNK
     Route: 065
  2. NICOTINE POLACRILEX [Suspect]
     Active Substance: NICOTINE
     Indication: NICOTINE DEPENDENCE
     Dosage: 2 MG, PRN
     Route: 002
     Dates: start: 2018, end: 2018
  3. NICOTINE POLACRILEX [Suspect]
     Active Substance: NICOTINE
     Dosage: 2 MG, SINGLE
     Route: 002
     Dates: start: 20190523, end: 20190523
  4. LYRICA [Concomitant]
     Active Substance: PREGABALIN
     Indication: ARTHRITIS
     Dosage: 50 MG, PRN
     Route: 065
     Dates: start: 2017

REACTIONS (2)
  - Expired product administered [Recovered/Resolved]
  - Eructation [Recovered/Resolved]

NARRATIVE: CASE EVENT DATE: 2018
